FAERS Safety Report 9206076 (Version 2)
Quarter: 2013Q4

REPORT INFORMATION
  Report Type: Spontaneous
  Country: US (occurrence: US)
  Receive Date: 20130403
  Receipt Date: 20131111
  Transmission Date: 20140711
  Serious: Yes (Other)
  Sender: FDA-Public Use
  Company Number: US-BAYER-2013-039263

PATIENT
  Age: 22 Year
  Sex: Female

DRUGS (7)
  1. SUCRALFATE [Concomitant]
     Dosage: 1 GM, TAKE ONE TABLET EVERY 6 HOURS
     Route: 048
  2. ZEGERID [Concomitant]
     Dosage: 40-1100, TAKE ONE CAPSULE EVERY DAY
     Route: 048
     Dates: start: 20100329, end: 20100505
  3. YAZ [Suspect]
     Dosage: UNK
     Dates: start: 2008, end: 2010
  4. YASMIN [Suspect]
     Dosage: UNK
     Dates: start: 2008, end: 2010
  5. OCELLA [Suspect]
     Dosage: UNK
     Dates: start: 2008, end: 2010
  6. PROMETHAZINE [Concomitant]
     Dosage: 25 MG, TAKE ONE TABLET EVERY 6 HOURS AS NEEDED
  7. PREVACID [Concomitant]

REACTIONS (10)
  - Cholelithiasis [None]
  - Cholecystitis chronic [None]
  - Biliary dyskinesia [None]
  - Abdominal pain [None]
  - Injury [None]
  - Pain [None]
  - General physical health deterioration [None]
  - Anxiety [None]
  - Emotional distress [None]
  - Pain [None]
